FAERS Safety Report 7548837-4 (Version None)
Quarter: 2011Q2

REPORT INFORMATION
  Report Type: 
  Country: None (occurrence: None)
  Receive Date: 20110615
  Receipt Date: 20110607
  Transmission Date: 20111010
  Serious: Yes (Hospitalization)
  Sender: FDA-Public Use
  Company Number: CA-PFIZER INC-2011126520

PATIENT
  Age: 64 Year
  Sex: Male
  Weight: 103 kg

DRUGS (22)
  1. LIPITOR [Concomitant]
     Indication: HYPERTENSION
  2. SEROQUEL [Concomitant]
     Dosage: 25 MG, AS NEEDED MAYBE ONCE A WEEK)
  3. NEURONTIN [Concomitant]
     Indication: DEPRESSION
     Dosage: 400 MG, 1X/DAY
  4. PROPRANOLOL [Concomitant]
     Indication: DEPRESSION
     Dosage: 20 MG, 1X/DAY
  5. DAPSONE [Concomitant]
     Indication: DERMATITIS HERPETIFORMIS
     Dosage: 100 MG, 1X/DAY
  6. REQUIP [Concomitant]
     Indication: RESTLESS LEGS SYNDROME
     Dosage: 0.25 MG, 1X/DAY
  7. LITHIUM CARBONATE [Concomitant]
     Indication: DEPRESSION
     Dosage: 600 MG, 2X/DAY
  8. COZAAR [Concomitant]
     Indication: BLOOD CHOLESTEROL
     Dosage: 50 MG, 1X/DAY
  9. VENLAFAXINE [Concomitant]
     Indication: DEPRESSION
     Dosage: 300 MG, 1X/DAY
  10. FERROUS FUMARATE [Concomitant]
     Indication: ANAEMIA
     Dosage: 300 MG, UNK
  11. CELEBREX [Concomitant]
     Indication: ARTHRITIS
     Dosage: 200 MG, 1X/DAY
  12. CHONDROITIN [Concomitant]
     Indication: ARTHRITIS
     Dosage: 600 MG, 1X/DAY
  13. CLINDAMYCIN HCL [Suspect]
     Indication: SINUS DISORDER
     Dosage: UNK
     Dates: start: 20091001
  14. VENLAFAXINE [Concomitant]
     Dosage: 75 MG, 1X/DAY
  15. GLUCOSAMINE [Concomitant]
     Indication: ARTHRITIS
     Dosage: 750 MG, 1X/DAY
  16. PANTOLOC ^BYK MADAUS^ [Concomitant]
     Indication: HIATUS HERNIA
     Dosage: 40 MG, 1X/DAY
  17. SEROQUEL [Concomitant]
     Indication: DEPRESSION
     Dosage: 100 MG, 1X/DAY
  18. LIPITOR [Concomitant]
     Indication: BLOOD CHOLESTEROL
     Dosage: 10 MG, 1X/DAY
     Dates: end: 20101019
  19. COZAAR [Concomitant]
     Indication: HYPERTENSION
  20. IMOVANE [Concomitant]
     Indication: SLEEP DISORDER
     Dosage: 7.5 MG, AS NEEDED (OCCASIONAL, MAYBE ONCE OR TWICE A MONTH)
  21. DOMPERIDONE [Concomitant]
     Indication: GASTROINTESTINAL MOTILITY DISORDER
     Dosage: 10 MG, 3X/DAY
  22. ADDERALL 10 [Concomitant]
     Indication: DEPRESSION
     Dosage: 20 MG, 1X/DAY

REACTIONS (8)
  - DIARRHOEA [None]
  - NAUSEA [None]
  - THIRST [None]
  - ABDOMINAL PAIN UPPER [None]
  - CLOSTRIDIAL INFECTION [None]
  - RASH GENERALISED [None]
  - HYPERHIDROSIS [None]
  - LOSS OF CONSCIOUSNESS [None]
